FAERS Safety Report 7522943-2 (Version None)
Quarter: 2011Q2

REPORT INFORMATION
  Report Type: 
  Country: None (occurrence: None)
  Receive Date: 20110603
  Receipt Date: 20110526
  Transmission Date: 20111010
  Serious: Yes (Other)
  Sender: FDA-Public Use
  Company Number: US-JNJFOC-20110409292

PATIENT
  Sex: Male

DRUGS (6)
  1. CRESTOR [Concomitant]
  2. DIOVAN [Concomitant]
  3. LIPITOR [Concomitant]
  4. METFORMIN HCL [Concomitant]
  5. STELARA [Suspect]
     Route: 058
     Dates: start: 20110318
  6. STELARA [Suspect]
     Indication: PSORIASIS
     Route: 058
     Dates: start: 20100322

REACTIONS (1)
  - PROSTATE CANCER [None]
